FAERS Safety Report 12013036 (Version 2)
Quarter: 2016Q1

REPORT INFORMATION
  Report Type: Spontaneous
  Country: BR (occurrence: BR)
  Receive Date: 20160205
  Receipt Date: 20160222
  Transmission Date: 20160526
  Serious: No
  Sender: FDA-Public Use
  Company Number: BR-SA-2016SA020251

PATIENT
  Sex: Female

DRUGS (2)
  1. LANTUS [Suspect]
     Active Substance: INSULIN GLARGINE
     Dosage: 42 IU AFTER BREAKFAST
     Route: 065
     Dates: start: 2012
  2. METFORMIN [Concomitant]
     Active Substance: METFORMIN HYDROCHLORIDE

REACTIONS (7)
  - Hypoaesthesia [Unknown]
  - Hypoglycaemia [Recovered/Resolved]
  - Insomnia [Unknown]
  - Hyperglycaemia [Unknown]
  - Pharyngitis [Recovered/Resolved]
  - Swelling [Unknown]
  - Pain in extremity [Unknown]
